FAERS Safety Report 4359391-2 (Version None)
Quarter: 2004Q2

REPORT INFORMATION
  Report Type: 
  Country: None (occurrence: None)
  Receive Date: 20040511
  Receipt Date: 20040428
  Transmission Date: 20050107
  Serious: Yes (Life-Threatening, Hospitalization)
  Sender: FDA-Public Use
  Company Number: CAN-2004-0000134

PATIENT
  Sex: 0

DRUGS (1)
  1. MS CONTIN [Suspect]
     Indication: PAIN
     Dosage: 1.9 MG/KG, ORAL
     Route: 048

REACTIONS (1)
  - ACUTE CHEST SYNDROME [None]
